FAERS Safety Report 7919413-6 (Version None)
Quarter: 2011Q4

REPORT INFORMATION
  Report Type: 
  Country: None (occurrence: None)
  Receive Date: 20111117
  Receipt Date: 20111109
  Transmission Date: 20120403
  Serious: Yes (Other)
  Sender: FDA-Public Use
  Company Number: US-US-EMD SERONO, INC.-7095524

PATIENT
  Sex: Female

DRUGS (1)
  1. REBIF [Suspect]
     Indication: MULTIPLE SCLEROSIS
     Route: 058
     Dates: start: 20090403

REACTIONS (10)
  - INJECTION SITE ERYTHEMA [None]
  - HAEMORRHAGE [None]
  - SLEEP DISORDER [None]
  - FATIGUE [None]
  - SKIN NEOPLASM EXCISION [None]
  - INJECTION SITE PAIN [None]
  - ANXIETY [None]
  - INFLUENZA LIKE ILLNESS [None]
  - MUSCLE SPASMS [None]
  - MEMORY IMPAIRMENT [None]
